FAERS Safety Report 9775664 (Version 2)
Quarter: 2014Q1

REPORT INFORMATION
  Report Type: Spontaneous
  Country: CN (occurrence: CN)
  Receive Date: 20131220
  Receipt Date: 20140303
  Transmission Date: 20141002
  Serious: Yes (Death, Other)
  Sender: FDA-Public Use
  Company Number: CN-PFIZER INC-2013363963

PATIENT
  Sex: Male

DRUGS (6)
  1. MS CONTIN [Suspect]
     Indication: CANCER PAIN
     Dosage: 30 MG, 2X/DAY
     Route: 048
     Dates: start: 201308
  2. MS CONTIN [Suspect]
     Dosage: 60 MG, 2X/DAY
     Route: 048
  3. MS CONTIN [Suspect]
     Dosage: 90 MG, 2X/DAY
     Route: 048
  4. MS CONTIN [Suspect]
     Dosage: 120 MG, 2X/DAY
     Route: 048
  5. OXYCONTIN [Suspect]
     Indication: CANCER PAIN
     Dosage: 20 MG, 2X/DAY
     Route: 048
  6. CODEINE [Concomitant]
     Indication: BREAKTHROUGH PAIN
     Dosage: 10 MG TABLETS ONCE TO TWICE DAILY
     Dates: start: 201308

REACTIONS (10)
  - Hepatic cancer [Fatal]
  - Disease progression [Fatal]
  - Delirium [Recovered/Resolved]
  - Speech disorder [Unknown]
  - Breakthrough pain [Recovered/Resolved]
  - Rash [Recovered/Resolved]
  - Pruritus [Recovered/Resolved]
  - Nausea [Not Recovered/Not Resolved]
  - Vomiting [Not Recovered/Not Resolved]
  - Constipation [Not Recovered/Not Resolved]
